FAERS Safety Report 16780247 (Version 3)
Quarter: 2019Q4

REPORT INFORMATION
  Report Type: Spontaneous
  Country: US (occurrence: US)
  Receive Date: 20190906
  Receipt Date: 20191117
  Transmission Date: 20200122
  Serious: Yes (Other)
  Sender: FDA-Public Use
  Company Number: ALC2019US000661

PATIENT

DRUGS (1)
  1. GENTEAL MILD [Suspect]
     Active Substance: HYPROMELLOSE 2910 (4000 MPA.S)
     Indication: PRODUCT USED FOR UNKNOWN INDICATION
     Route: 065

REACTIONS (5)
  - Ocular discomfort [Recovered/Resolved]
  - Eye pain [Recovered/Resolved]
  - Eye irritation [Recovered/Resolved]
  - Eye infection [Recovered/Resolved]
  - Product contamination [Recovered/Resolved]
